APPROVED DRUG PRODUCT: HYDROCODONE BITARTRATE AND ACETAMINOPHEN
Active Ingredient: ACETAMINOPHEN; HYDROCODONE BITARTRATE
Strength: 300MG;10MG
Dosage Form/Route: TABLET;ORAL
Application: A207808 | Product #003
Applicant: RHODES PHARMACEUTICALS LP
Approved: Mar 30, 2018 | RLD: No | RS: No | Type: DISCN